FAERS Safety Report 8415321-5 (Version None)
Quarter: 2012Q2

REPORT INFORMATION
  Report Type: 
  Country: None (occurrence: None)
  Receive Date: 20120606
  Receipt Date: 20120531
  Transmission Date: 20120825
  Serious: Yes (Life-Threatening, Hospitalization)
  Sender: FDA-Public Use
  Company Number: SE-JNJFOC-20120521165

PATIENT
  Sex: Male

DRUGS (5)
  1. ZYTIGA [Suspect]
     Indication: PROSTATE CANCER
     Route: 048
     Dates: start: 20120309, end: 20120319
  2. FELODIPINE [Concomitant]
     Route: 065
  3. TAXOTERE [Concomitant]
     Route: 065
     Dates: end: 20120301
  4. GLEEVEC [Suspect]
     Indication: PRODUCT USED FOR UNKNOWN INDICATION
     Route: 065
     Dates: start: 20120301
  5. OXAZEPAM [Concomitant]
     Route: 065

REACTIONS (1)
  - CARDIAC FAILURE [None]
